FAERS Safety Report 8531455-9 (Version None)
Quarter: 2012Q3

REPORT INFORMATION
  Report Type: 
  Country: None (occurrence: None)
  Receive Date: 20120723
  Receipt Date: 20120716
  Transmission Date: 20120928
  Serious: Yes (Hospitalization)
  Sender: FDA-Public Use
  Company Number: US-ALEXION-A201201195

PATIENT
  Sex: Female

DRUGS (9)
  1. WARFARIN SODIUM [Concomitant]
     Dosage: 7.5 MG, QD (5 MG TAB)
     Dates: start: 20120327
  2. SOLIRIS [Suspect]
     Indication: PAROXYSMAL NOCTURNAL HAEMOGLOBINURIA
     Dosage: 900 MG, Q2W
     Route: 042
  3. SENOKOT [Concomitant]
     Dosage: 8.6 MG, QD QHS OTC
     Route: 048
     Dates: start: 20101112
  4. TYLENOL [Concomitant]
     Dosage: 325 MG, PRN
     Dates: start: 20101112
  5. TACROLIMUS [Concomitant]
     Dosage: 0.5 MG, BID TAKE 2 CAPS IN AM + 1 CAP IN PM
     Dates: start: 20120607
  6. MAGNESIUM OXIDE [Concomitant]
     Dosage: 400 MG, BID
     Route: 048
     Dates: start: 20120703
  7. VANCOMYCIN [Suspect]
     Indication: ANTIBIOTIC THERAPY
     Dosage: UNK
  8. MULTI-VITAMIN [Concomitant]
     Dosage: 1 QD
     Route: 048
     Dates: start: 20101112
  9. PRILOSEC [Concomitant]
     Dosage: 20 MG, QD QHS OTC
     Route: 048
     Dates: start: 20101112

REACTIONS (2)
  - STAPHYLOCOCCAL INFECTION [None]
  - NONSPECIFIC REACTION [None]
